FAERS Safety Report 9807011 (Version 1)
Quarter: 2014Q1

REPORT INFORMATION
  Report Type: Report from Study
  Country: NL (occurrence: NL)
  Receive Date: 20140110
  Receipt Date: 20140110
  Transmission Date: 20141002
  Serious: Yes (Life-Threatening, Hospitalization, Other)
  Sender: FDA-Public Use
  Company Number: US-ASTRAZENECA-2014SE00978

PATIENT
  Age: 58 Day
  Sex: Female

DRUGS (1)
  1. SYNAGIS [Suspect]
     Indication: ANTIVIRAL PROPHYLAXIS
     Route: 030
     Dates: start: 20131227

REACTIONS (5)
  - Cardiac arrest [Recovered/Resolved]
  - Respiratory syncytial virus test positive [Not Recovered/Not Resolved]
  - Iron deficiency [Unknown]
  - Malaise [Unknown]
  - Pallor [Unknown]
